FAERS Safety Report 6187718-8 (Version None)
Quarter: 2009Q2

REPORT INFORMATION
  Report Type: 
  Country: None (occurrence: None)
  Receive Date: 20090513
  Receipt Date: 20090430
  Transmission Date: 20091009
  Serious: Yes (Hospitalization, Other)
  Sender: FDA-Public Use
  Company Number: DE-PFIZER INC-2008095961

PATIENT
  Age: 82 Year

DRUGS (9)
  1. LYRICA [Suspect]
     Indication: ANXIETY
     Route: 048
     Dates: start: 20080617, end: 20080623
  2. PROTHIPENDYL HYDROCHLORIDE [Interacting]
     Route: 048
     Dates: start: 20080616, end: 20080622
  3. ASPIRIN [Concomitant]
     Route: 048
  4. OMEPRAZOL [Concomitant]
     Route: 048
  5. RANTUDIL [Concomitant]
     Route: 048
  6. METHIONINE [Concomitant]
     Route: 048
  7. SOLIFENACIN SUCCINATE [Concomitant]
     Route: 048
  8. RISPERDAL [Concomitant]
     Route: 048
  9. OXAZEPAM [Concomitant]
     Route: 048

REACTIONS (4)
  - BILIARY DILATATION [None]
  - CHOLELITHIASIS [None]
  - DRUG INTERACTION [None]
  - LIVER FUNCTION TEST ABNORMAL [None]
